FAERS Safety Report 21110136 (Version 3)
Quarter: 2022Q3

REPORT INFORMATION
  Report Type: Spontaneous
  Country: JP (occurrence: JP)
  Receive Date: 20220721
  Receipt Date: 20220811
  Transmission Date: 20221027
  Serious: Yes (Other)
  Sender: FDA-Public Use
  Company Number: JP-BAYER-2022A095709

PATIENT
  Age: 61 Year
  Sex: Male

DRUGS (1)
  1. EYLEA [Suspect]
     Active Substance: AFLIBERCEPT
     Indication: Retinal vein occlusion
     Dosage: 0.05ML, RIGHT EYE, ONCE, SOLUTION FOR INJECTION
     Dates: start: 20220630, end: 20220630

REACTIONS (6)
  - Blindness transient [Recovering/Resolving]
  - Corneal endotheliitis [Recovered/Resolved]
  - Ocular discomfort [Recovered/Resolved]
  - Corneal disorder [Recovered/Resolved]
  - Swelling of eyelid [Recovered/Resolved]
  - Corneal epithelium defect [Recovered/Resolved]

NARRATIVE: CASE EVENT DATE: 20220701
